FAERS Safety Report 21333108 (Version 1)
Quarter: 2022Q3

REPORT INFORMATION
  Report Type: Spontaneous
  Country: US (occurrence: US)
  Receive Date: 20220914
  Receipt Date: 20220914
  Transmission Date: 20221027
  Serious: No
  Sender: FDA-Public Use
  Company Number: US-LUPIN PHARMACEUTICALS INC.-2022-11050

PATIENT
  Age: 66 Year
  Sex: Female

DRUGS (15)
  1. AZITHROMYCIN [Suspect]
     Active Substance: AZITHROMYCIN
     Indication: Mycobacterium abscessus infection
     Dosage: 250 MILLIGRAM, QD
     Route: 048
     Dates: start: 202012, end: 202110
  2. AMIKACIN [Suspect]
     Active Substance: AMIKACIN
     Indication: Mycobacterium abscessus infection
     Dosage: 15 MILLIGRAM/KILOGRAM, ON MONDAY, WEDNESDAY AND FRIDAY
     Route: 065
     Dates: start: 202012, end: 202109
  3. AMIKACIN [Suspect]
     Active Substance: AMIKACIN
     Dosage: 8 MILLIGRAM PER LITRE
     Route: 065
  4. OMADACYCLINE [Suspect]
     Active Substance: OMADACYCLINE
     Indication: Mycobacterium abscessus infection
     Dosage: 300 MILLIGRAM, QD
     Route: 048
     Dates: start: 202012, end: 202110
  5. TIGECYCLINE [Concomitant]
     Active Substance: TIGECYCLINE
     Indication: Product used for unknown indication
     Dosage: UNK
     Route: 065
  6. CLARITHROMYCIN [Concomitant]
     Active Substance: CLARITHROMYCIN
     Indication: Product used for unknown indication
     Dosage: 0.25 MILLIGRAM PER LITRE
     Route: 065
  7. LINEZOLID [Concomitant]
     Active Substance: LINEZOLID
     Indication: Product used for unknown indication
     Dosage: 4 MILLIGRAM PER LITRE
     Route: 065
  8. CEFOXITIN SODIUM [Concomitant]
     Active Substance: CEFOXITIN SODIUM
     Indication: Product used for unknown indication
     Dosage: 32 MILLIGRAM PER LITRE
     Route: 065
  9. IMIPENEM [Concomitant]
     Active Substance: IMIPENEM
     Indication: Product used for unknown indication
     Dosage: 8 MILLIGRAM PER LITRE
     Route: 065
  10. DOXYCYCLINE [Concomitant]
     Active Substance: DOXYCYCLINE
     Indication: Product used for unknown indication
     Dosage: UNK
     Route: 065
  11. CIPROFLOXACIN [Concomitant]
     Active Substance: CIPROFLOXACIN
     Indication: Product used for unknown indication
     Dosage: UNK
     Route: 065
  12. MINOCYCLINE [Concomitant]
     Active Substance: MINOCYCLINE HYDROCHLORIDE
     Indication: Product used for unknown indication
     Dosage: UNK
     Route: 065
  13. MOXIFLOXACIN [Concomitant]
     Active Substance: MOXIFLOXACIN
     Indication: Product used for unknown indication
     Dosage: UNK
     Route: 065
  14. SULFAMETHOXAZOLE [Concomitant]
     Active Substance: SULFAMETHOXAZOLE
     Indication: Product used for unknown indication
     Dosage: UNK
     Route: 065
  15. TRIMETHOPRIM [Concomitant]
     Active Substance: TRIMETHOPRIM
     Indication: Product used for unknown indication
     Dosage: UNK
     Route: 065

REACTIONS (2)
  - Tinnitus [Unknown]
  - Off label use [Unknown]

NARRATIVE: CASE EVENT DATE: 20201201
